FAERS Safety Report 4989439-3 (Version None)
Quarter: 2006Q2

REPORT INFORMATION
  Report Type: 
  Country: None (occurrence: None)
  Receive Date: 20060425
  Receipt Date: 20060410
  Transmission Date: 20061013
  Serious: Yes (Hospitalization)
  Sender: FDA-Public Use
  Company Number: TRP_0738_2006

PATIENT
  Age: 54 Year
  Sex: Male

DRUGS (15)
  1. RIBASPHERE [Suspect]
     Indication: HEPATITIS C
     Dosage: 600  MG BID PO
     Route: 048
     Dates: start: 20060124, end: 20060228
  2. INFERGEN [Suspect]
     Indication: HEPATITIS C
     Dosage: 9 MCG QDAY SC
     Route: 058
     Dates: start: 20060124, end: 20060228
  3. RIBASPHERE [Suspect]
     Indication: HEPATITIS C
     Dosage: 800 MG QDAY PO
     Route: 048
     Dates: start: 20060313, end: 20060316
  4. INFERGEN [Suspect]
     Indication: HEPATITIS C
     Dosage: 6 MCG QDAY SC
     Route: 058
     Dates: start: 20060313, end: 20060316
  5. RIBASPHERE [Suspect]
     Indication: HEPATITIS C
     Dosage: 800 MG QDAY PO
     Route: 048
     Dates: start: 20060320, end: 20060321
  6. INFERGEN [Suspect]
     Indication: HEPATITIS C
     Dosage: 6 MCG QDAY SC
     Route: 058
     Dates: start: 20060320, end: 20060321
  7. STRATTERA [Concomitant]
  8. WELLBUTRIN [Concomitant]
  9. ATIVAN [Concomitant]
  10. AMBIEN [Concomitant]
  11. CENTRUM SILVER [Concomitant]
  12. TYLENOL (CAPLET) [Concomitant]
  13. VALTREX [Concomitant]
  14. IBUPROFEN [Concomitant]
  15. NEURONTIN [Concomitant]

REACTIONS (13)
  - ABDOMINAL DISTENSION [None]
  - ABDOMINAL PAIN [None]
  - APPENDIX DISORDER [None]
  - ASTHENIA [None]
  - COLITIS [None]
  - COLONIC POLYP [None]
  - CONSTIPATION [None]
  - DIARRHOEA [None]
  - GASTROINTESTINAL DISORDER [None]
  - HYPERTROPHY [None]
  - LIVER DISORDER [None]
  - LYMPHADENOPATHY [None]
  - NEPHROLITHIASIS [None]
